FAERS Safety Report 19857286 (Version 6)
Quarter: 2023Q1

REPORT INFORMATION
  Report Type: Report from Study
  Country: GB (occurrence: GB)
  Receive Date: 20210921
  Receipt Date: 20230208
  Transmission Date: 20230418
  Serious: Yes (Hospitalization, Other)
  Sender: FDA-Public Use
  Company Number: GB-TAKEDA-2020TUS043796

PATIENT

DRUGS (29)
  1. DEXAMETHASONE [Suspect]
     Active Substance: DEXAMETHASONE
     Indication: Plasma cell myeloma
     Dosage: UNK DEXAMETHASONE SODIUM PHOSPHAT
     Route: 065
     Dates: start: 20201014, end: 20210824
  2. DEXAMETHASONE [Suspect]
     Active Substance: DEXAMETHASONE
     Dosage: 3 MG DEXAMETHASONE SODIUM PHOSPHAT
     Route: 048
     Dates: start: 20190510, end: 20210218
  3. DEXAMETHASONE [Suspect]
     Active Substance: DEXAMETHASONE
     Dosage: UNK DEXAMETHASONE SODIUM PHOSPHAT
     Route: 065
     Dates: start: 20190518
  4. DEXAMETHASONE [Suspect]
     Active Substance: DEXAMETHASONE
     Dosage: UNK DEXAMETHASONE SODIUM PHOSPHAT
     Route: 065
  5. DEXAMETHASONE [Suspect]
     Active Substance: DEXAMETHASONE
     Indication: Plasma cell myeloma
     Dosage: 3 MG
     Route: 065
     Dates: start: 20190510, end: 20210218
  6. DEXAMETHASONE [Suspect]
     Active Substance: DEXAMETHASONE
     Dosage: 3 MG
     Route: 065
     Dates: start: 20201014, end: 20210824
  7. DEXAMETHASONE [Suspect]
     Active Substance: DEXAMETHASONE
     Dosage: ORAL
     Route: 065
     Dates: start: 20190518
  8. DEXAMETHASONE [Suspect]
     Active Substance: DEXAMETHASONE
     Dosage: 3 MG CAPSULE
     Route: 048
     Dates: start: 20190510, end: 20210218
  9. DEXAMETHASONE [Suspect]
     Active Substance: DEXAMETHASONE
     Dosage: 3 MILLIGRAM
     Route: 048
     Dates: start: 20190510, end: 20210218
  10. DEXAMETHASONE [Suspect]
     Active Substance: DEXAMETHASONE
     Dosage: 4 MG
     Route: 065
     Dates: start: 20190518
  11. DEXAMETHASONE [Suspect]
     Active Substance: DEXAMETHASONE
     Dosage: 4 MG
     Route: 065
     Dates: start: 20201014, end: 20210824
  12. DEXAMETHASONE [Suspect]
     Active Substance: DEXAMETHASONE
     Dosage: 4 MG
     Route: 048
     Dates: start: 20190510
  13. DEXAMETHASONE [Suspect]
     Active Substance: DEXAMETHASONE
     Dosage: 4 MG
     Route: 065
     Dates: end: 20210824
  14. LENALIDOMIDE [Suspect]
     Active Substance: LENALIDOMIDE
     Indication: Plasma cell myeloma
     Dosage: 3 MG
     Route: 065
     Dates: start: 20190510, end: 20210218
  15. LENALIDOMIDE [Suspect]
     Active Substance: LENALIDOMIDE
     Dosage: 4 MG
     Route: 065
     Dates: start: 20201014, end: 20210824
  16. LENALIDOMIDE [Suspect]
     Active Substance: LENALIDOMIDE
     Dosage: UNK
     Route: 065
     Dates: start: 20190518, end: 20190518
  17. LENALIDOMIDE [Suspect]
     Active Substance: LENALIDOMIDE
     Dosage: UNK
     Route: 065
     Dates: start: 20190510, end: 20210218
  18. LENALIDOMIDE [Suspect]
     Active Substance: LENALIDOMIDE
     Dosage: UNK
     Route: 065
     Dates: start: 20201014, end: 20210824
  19. LENALIDOMIDE [Suspect]
     Active Substance: LENALIDOMIDE
     Dosage: 3 MG
     Route: 065
     Dates: start: 20190518, end: 20210518
  20. LENALIDOMIDE [Suspect]
     Active Substance: LENALIDOMIDE
     Dosage: 4 MG
     Route: 065
     Dates: start: 20190510, end: 20210218
  21. LENALIDOMIDE [Suspect]
     Active Substance: LENALIDOMIDE
     Dosage: 3 MG
     Route: 065
     Dates: start: 20210218
  22. LENALIDOMIDE [Suspect]
     Active Substance: LENALIDOMIDE
     Dosage: 3 MG
     Route: 065
     Dates: start: 20190518, end: 20190518
  23. LENALIDOMIDE [Suspect]
     Active Substance: LENALIDOMIDE
     Dosage: 4 MG
     Route: 065
     Dates: end: 20210824
  24. NINLARO [Suspect]
     Active Substance: IXAZOMIB CITRATE
     Indication: Plasma cell myeloma
     Dosage: 4 MG
     Route: 048
     Dates: start: 20190510, end: 20210218
  25. NINLARO [Suspect]
     Active Substance: IXAZOMIB CITRATE
     Dosage: 4 MG
     Route: 048
     Dates: start: 20201014, end: 20210824
  26. NINLARO [Suspect]
     Active Substance: IXAZOMIB CITRATE
     Dosage: 3 MG
     Route: 048
     Dates: start: 20190518
  27. NINLARO [Suspect]
     Active Substance: IXAZOMIB CITRATE
     Dosage: 4 MG
     Route: 065
     Dates: start: 20190518
  28. NINLARO [Suspect]
     Active Substance: IXAZOMIB CITRATE
     Dosage: UNK
  29. NINLARO [Suspect]
     Active Substance: IXAZOMIB CITRATE
     Dosage: 4 UNK

REACTIONS (8)
  - Off label use [Unknown]
  - Lower respiratory tract infection [Recovering/Resolving]
  - Upper respiratory tract infection [Recovering/Resolving]
  - Neck pain [Not Recovered/Not Resolved]
  - Back pain [Not Recovered/Not Resolved]
  - Hepatic function abnormal [Recovered/Resolved]
  - Illness [Recovered/Resolved]
  - Diarrhoea [Recovered/Resolved]

NARRATIVE: CASE EVENT DATE: 20210218
